FAERS Safety Report 23307017 (Version 2)
Quarter: 2024Q1

REPORT INFORMATION
  Report Type: Spontaneous
  Country: US (occurrence: US)
  Receive Date: 20231218
  Receipt Date: 20240103
  Transmission Date: 20240410
  Serious: No
  Sender: FDA-Public Use
  Company Number: US-Calliditas-2023CAL01638

PATIENT
  Age: 35 Year
  Sex: Male

DRUGS (8)
  1. TARPEYO [Suspect]
     Active Substance: BUDESONIDE
     Indication: IgA nephropathy
     Dosage: 16 MG (4 MG CAPSULES) ONCE DAILY
     Route: 048
     Dates: start: 20231121, end: 20231211
  2. METOPROLOL [Concomitant]
     Active Substance: METOPROLOL
  3. CINACALCET [Concomitant]
     Active Substance: CINACALCET
  4. FARXIGA [Concomitant]
     Active Substance: DAPAGLIFLOZIN PROPANEDIOL
  5. ALLOPURINOL [Concomitant]
     Active Substance: ALLOPURINOL
  6. FLONASE [Concomitant]
     Active Substance: FLUTICASONE PROPIONATE
  7. ZYRTEC [Concomitant]
     Active Substance: CETIRIZINE HYDROCHLORIDE
     Dosage: AS NECESSARY
  8. VITAMIN D NOS [Concomitant]
     Active Substance: VITAMIN D NOS

REACTIONS (1)
  - Rash [Recovered/Resolved]
